FAERS Safety Report 22164879 (Version 2)
Quarter: 2023Q2

REPORT INFORMATION
  Report Type: Other
  Country: US (occurrence: None)
  Receive Date: 20230403
  Receipt Date: 20230404
  Transmission Date: 20230721
  Serious: Yes (Other)
  Sender: FDA-Public Use
  Company Number: US-ROCHE-3320898

PATIENT
  Age: 75 Year
  Sex: Female
  Weight: 72.640 kg

DRUGS (19)
  1. RITUXAN [Suspect]
     Active Substance: RITUXIMAB
     Indication: Product used for unknown indication
     Route: 065
  2. CELLCEPT [Suspect]
     Active Substance: MYCOPHENOLATE MOFETIL
     Indication: Product used for unknown indication
     Route: 065
  3. GASTROCROM [Concomitant]
     Active Substance: CROMOLYN SODIUM
     Dosage: TAKE 15 ML BY MOUTH EVERY 4 HOURS AS NEEDED
     Route: 048
  4. ZYRTEC [Concomitant]
     Active Substance: CETIRIZINE HYDROCHLORIDE
     Dosage: TAKE ONE TAB BY MOUTH DAILY
     Route: 048
  5. XYZAL [Concomitant]
     Active Substance: LEVOCETIRIZINE DIHYDROCHLORIDE
     Dosage: TAKE ONE TAB BY MOUTH DAILY AT BEDTIME
     Route: 048
  6. ALBUTEROL [Concomitant]
     Active Substance: ALBUTEROL
  7. GAMMAGARD [Concomitant]
     Active Substance: HUMAN IMMUNOGLOBULIN G
  8. XANAX [Concomitant]
     Active Substance: ALPRAZOLAM
  9. ATARAX [Concomitant]
     Active Substance: HYDROXYZINE HYDROCHLORIDE
     Dosage: TAKE 1 TABLET BY MOUTH TWICE DAILY AS NEEDED
  10. VITAMIN D3 [Concomitant]
     Active Substance: CHOLECALCIFEROL
     Dosage: TAKE ONE CAP BY MOUTH DAILY
  11. PEPCID [Concomitant]
     Active Substance: FAMOTIDINE
     Route: 048
  12. ZOFRAN [Concomitant]
     Active Substance: ONDANSETRON HYDROCHLORIDE
     Dosage: TAKE ONE TAB BY MOUTH ONCE
     Route: 048
  13. EPIPEN [Concomitant]
     Active Substance: EPINEPHRINE
  14. TRICOR [Concomitant]
     Active Substance: FENOFIBRATE
     Route: 048
  15. OCALIVA [Concomitant]
     Active Substance: OBETICHOLIC ACID
     Dosage: TAKE ONE TAB BY MOUTH DAILY
     Route: 048
  16. ACTIGALL [Concomitant]
     Active Substance: URSODIOL
     Route: 048
  17. BACTROBAN [Concomitant]
     Active Substance: MUPIROCIN\MUPIROCIN CALCIUM
  18. CYANOCOBALAMIN [Concomitant]
     Active Substance: CYANOCOBALAMIN
  19. EVENING PRIMROSE OIL\HERBALS [Concomitant]
     Active Substance: EVENING PRIMROSE OIL\HERBALS

REACTIONS (2)
  - Angioedema [Unknown]
  - Anaphylactic reaction [Unknown]

NARRATIVE: CASE EVENT DATE: 20140903
